FAERS Safety Report 18620723 (Version 2)
Quarter: 2020Q4

REPORT INFORMATION
  Report Type: Spontaneous
  Country: US (occurrence: US)
  Receive Date: 20201216
  Receipt Date: 20201228
  Transmission Date: 20210114
  Serious: Yes (Death, Life-Threatening, Hospitalization, Other)
  Sender: FDA-Public Use
  Company Number: US-CIPLA LTD.-2020US09166

PATIENT

DRUGS (3)
  1. BLEOMYCIN SULPHATE [Suspect]
     Active Substance: BLEOMYCIN SULFATE
     Indication: SEMINOMA
     Dosage: UNK, CYCLICAL
     Route: 065
  2. CISPLATIN. [Suspect]
     Active Substance: CISPLATIN
     Indication: SEMINOMA
     Dosage: UNK, CYCLICAL
     Route: 065
  3. ETOPOSIDE. [Concomitant]
     Active Substance: ETOPOSIDE
     Indication: SEMINOMA
     Dosage: UNK, CYCLICAL
     Route: 065

REACTIONS (4)
  - Organising pneumonia [Fatal]
  - Acute respiratory distress syndrome [Fatal]
  - Traumatic lung injury [Fatal]
  - Respiratory failure [Fatal]
